FAERS Safety Report 6236972-2 (Version None)
Quarter: 2009Q2

REPORT INFORMATION
  Report Type: 
  Country: None (occurrence: None)
  Receive Date: 20090619
  Receipt Date: 20090304
  Transmission Date: 20091009
  Serious: No
  Sender: FDA-Public Use
  Company Number: US-ASTRAZENECA-2009UW05853

PATIENT
  Age: 9 Year
  Sex: Female
  Weight: 40.8 kg

DRUGS (2)
  1. SYMBICORT [Suspect]
     Indication: ASTHMA
     Dosage: 160 MCG 2 PUFFS BID, DECREASED TO 80 MCG 2 PUFFS BID
     Route: 055
  2. CLARINEX [Concomitant]

REACTIONS (2)
  - FACE OEDEMA [None]
  - WEIGHT INCREASED [None]
